FAERS Safety Report 14077651 (Version 1)
Quarter: 2017Q4

REPORT INFORMATION
  Report Type: Report from Study
  Country: US (occurrence: US)
  Receive Date: 20171012
  Receipt Date: 20171012
  Transmission Date: 20180321
  Serious: No
  Sender: FDA-Public Use
  Company Number: US-AMGEN-USASL2017152600

PATIENT
  Age: 59 Year
  Sex: Female

DRUGS (4)
  1. ENBREL [Suspect]
     Active Substance: ETANERCEPT
     Dosage: UNK
     Route: 065
  2. HUMIRA [Concomitant]
     Active Substance: ADALIMUMAB
     Indication: PSORIATIC ARTHROPATHY
     Dosage: UNK
     Route: 065
     Dates: start: 2003
  3. ENBREL [Suspect]
     Active Substance: ETANERCEPT
     Indication: PSORIATIC ARTHROPATHY
     Dosage: UNK
     Route: 065
     Dates: start: 2000, end: 2003
  4. ENBREL [Suspect]
     Active Substance: ETANERCEPT
     Dosage: EVERY WEEK AND A HALF TO TWO WEEKS
     Route: 065

REACTIONS (4)
  - Product storage error [Unknown]
  - Off label use [Unknown]
  - Drug effect decreased [Unknown]
  - Joint stiffness [Unknown]
